FAERS Safety Report 7526127-3 (Version None)
Quarter: 2011Q2

REPORT INFORMATION
  Report Type: 
  Country: None (occurrence: None)
  Receive Date: 20110606
  Receipt Date: 20110601
  Transmission Date: 20111010
  Serious: Yes (Other)
  Sender: FDA-Public Use
  Company Number: GB-MERCK-1106GBR00005

PATIENT
  Age: 60 Year
  Sex: Female
  Weight: 81 kg

DRUGS (4)
  1. JANUVIA [Suspect]
     Indication: DIABETES MELLITUS
     Route: 048
     Dates: start: 20110207, end: 20110214
  2. ASPIRIN [Concomitant]
     Route: 065
  3. METFORMIN [Concomitant]
     Route: 065
  4. INSULIN [Concomitant]
     Route: 065

REACTIONS (1)
  - MULTIPLE SCLEROSIS RELAPSE [None]
